FAERS Safety Report 4363155-3 (Version None)
Quarter: 2004Q2

REPORT INFORMATION
  Report Type: 
  Country: None (occurrence: None)
  Receive Date: 20040517
  Receipt Date: 20040217
  Transmission Date: 20050107
  Serious: No
  Sender: FDA-Public Use
  Company Number: S04-USA-00924-01

PATIENT
  Age: 91 Year
  Sex: Female

DRUGS (12)
  1. NAMENDA [Suspect]
     Indication: DEMENTIA
     Dosage: 5 MG BID PO
     Route: 048
     Dates: start: 20040210, end: 20040101
  2. NAMENDA [Suspect]
     Indication: DEMENTIA
     Dosage: 5 MG BID PO
     Route: 048
     Dates: start: 20040203, end: 20040209
  3. EXELON [Concomitant]
  4. BENADRYL [Concomitant]
  5. TRAZODONE HCL [Concomitant]
  6. NORVASC [Concomitant]
  7. ZESTRIL [Concomitant]
  8. FOSAMAX [Concomitant]
  9. SYTHROID (LEVOTHYROXINE SODIUM) [Concomitant]
  10. ALLOPURINOL [Concomitant]
  11. ZOLF (SERTRALINE HYDROCHLORIDE) [Concomitant]
  12. PAIN MEDICATION (NOS) [Concomitant]

REACTIONS (2)
  - DIZZINESS [None]
  - DYSARTHRIA [None]
